FAERS Safety Report 15528801 (Version 2)
Quarter: 2019Q1

REPORT INFORMATION
  Report Type: Spontaneous
  Country: CA (occurrence: CA)
  Receive Date: 20181020
  Receipt Date: 20190328
  Transmission Date: 20190417
  Serious: Yes (Other)
  Sender: FDA-Public Use
  Company Number: CA-SUN PHARMACEUTICAL INDUSTRIES LTD-2018US-188668

PATIENT
  Age: 54 Year
  Sex: Female

DRUGS (5)
  1. RISEDRONATE [Suspect]
     Active Substance: RISEDRONATE SODIUM
     Indication: OSTEOGENESIS IMPERFECTA
     Dosage: UNK
     Route: 065
     Dates: end: 201410
  2. ESTRADIOL. [Concomitant]
     Active Substance: ESTRADIOL
     Indication: MENOPAUSAL SYMPTOMS PROPHYLAXIS
     Dosage: 0.025 MILLIGRAM, 2/WEEK (ESTRADIOL 0.025 MG/DAY TWICE A WEEK)
     Route: 062
  3. CALCIUM [Concomitant]
     Active Substance: CALCIUM
     Indication: MENOPAUSAL SYMPTOMS PROPHYLAXIS
     Dosage: UNK
     Route: 065
  4. ALENDRONIC ACID [Suspect]
     Active Substance: ALENDRONIC ACID
     Indication: OSTEOGENESIS IMPERFECTA
     Dosage: UNK
     Route: 065
  5. VITAMIN D [Concomitant]
     Active Substance: CHOLECALCIFEROL
     Indication: MENOPAUSAL SYMPTOMS PROPHYLAXIS
     Dosage: UNK
     Route: 065

REACTIONS (1)
  - Atypical femur fracture [Recovering/Resolving]
